FAERS Safety Report 8919855 (Version 3)
Quarter: 2012Q4

REPORT INFORMATION
  Report Type: 
  Country: GB (occurrence: GB)
  Receive Date: 20121121
  Receipt Date: 20121130
  Transmission Date: 20130627
  Serious: Yes (Other)
  Sender: FDA-Public Use
  Company Number: GB-PFIZER INC-2012289303

PATIENT
  Age: 57 Year
  Sex: Male

DRUGS (1)
  1. RAMIPRIL [Suspect]
     Indication: HYPERTENSION
     Dosage: 10 mg, twice daily
     Route: 048

REACTIONS (3)
  - Drug tolerance [Unknown]
  - Hypertension [Recovering/Resolving]
  - Blood pressure fluctuation [Recovering/Resolving]
